FAERS Safety Report 15358159 (Version 1)
Quarter: 2018Q3

REPORT INFORMATION
  Report Type: Spontaneous
  Country: US (occurrence: US)
  Receive Date: 20180906
  Receipt Date: 20180906
  Transmission Date: 20181010
  Serious: No
  Sender: FDA-Public Use
  Company Number: US-PERRIGO-17US030337

PATIENT
  Age: 50 Year
  Sex: Female
  Weight: 72.56 kg

DRUGS (1)
  1. MINOXIDIL. [Suspect]
     Active Substance: MINOXIDIL
     Indication: ALOPECIA
     Dosage: 1 ML, BID
     Route: 061
     Dates: start: 201710, end: 201710

REACTIONS (8)
  - Eye swelling [Recovered/Resolved]
  - Pain of skin [Recovered/Resolved]
  - Swelling [Recovered/Resolved]
  - Application site dryness [Not Recovered/Not Resolved]
  - Headache [Recovered/Resolved]
  - Application site ulcer [Recovered/Resolved]
  - Hypoacusis [Not Recovered/Not Resolved]
  - Eye infection [Recovered/Resolved]

NARRATIVE: CASE EVENT DATE: 201710
